FAERS Safety Report 5137707-7 (Version None)
Quarter: 2006Q4

REPORT INFORMATION
  Report Type: 
  Country: None (occurrence: None)
  Receive Date: 20061024
  Receipt Date: 20061011
  Transmission Date: 20070319
  Serious: Yes (Hospitalization)
  Sender: FDA-Public Use
  Company Number: 2006128105

PATIENT
  Age: 53 Year
  Sex: Male
  Weight: 74.3899 kg

DRUGS (1)
  1. BEXTRA [Suspect]
     Indication: NECK PAIN
     Dosage: 20 MG (20 MG, 1 IN 1 D)
     Dates: end: 20040801

REACTIONS (8)
  - ACTIVITIES OF DAILY LIVING IMPAIRED [None]
  - BACK PAIN [None]
  - CHEST PAIN [None]
  - DYSPNOEA [None]
  - HYPERTENSION [None]
  - INJURY [None]
  - OEDEMA PERIPHERAL [None]
  - PAIN IN EXTREMITY [None]
